FAERS Safety Report 5721846-3 (Version None)
Quarter: 2008Q2

REPORT INFORMATION
  Report Type: 
  Country: None (occurrence: None)
  Receive Date: 20080429
  Receipt Date: 20080424
  Transmission Date: 20081010
  Serious: Yes (Hospitalization)
  Sender: FDA-Public Use
  Company Number: NZ-ABBOTT-08P-118-0448924-00

PATIENT
  Age: 39 Year
  Sex: Female

DRUGS (1)
  1. VALPROATE SODIUM [Suspect]
     Indication: DRUG USE FOR UNKNOWN INDICATION
     Dosage: 1.2G/KG
     Route: 048

REACTIONS (3)
  - COMA [None]
  - METABOLIC ACIDOSIS [None]
  - OVERDOSE [None]
